FAERS Safety Report 6253601-2 (Version None)
Quarter: 2009Q2

REPORT INFORMATION
  Report Type: 
  Country: None (occurrence: None)
  Receive Date: 20090630
  Receipt Date: 20090622
  Transmission Date: 20091009
  Serious: Yes (Other)
  Sender: FDA-Public Use
  Company Number: CHPA2009US13877

PATIENT
  Age: 66 Year
  Sex: Female
  Weight: 81.6 kg

DRUGS (1)
  1. EXCEDRIN MIGRAINE        (CAFFINE CITRATE) ACETYLSALICYLIC ACID, ACETA [Suspect]
     Indication: BACK PAIN
     Dosage: 2 DF, ONCE/SINGLE, ORAL
     Route: 048
     Dates: start: 20090615, end: 20090615

REACTIONS (5)
  - ABDOMINAL DISCOMFORT [None]
  - DEHYDRATION [None]
  - NAUSEA [None]
  - VERTIGO [None]
  - VOMITING [None]
